FAERS Safety Report 8001707-X (Version None)
Quarter: 2011Q4

REPORT INFORMATION
  Report Type: 
  Country: None (occurrence: None)
  Receive Date: 20111222
  Receipt Date: 20111209
  Transmission Date: 20120403
  Serious: Yes (Other)
  Sender: FDA-Public Use
  Company Number: CA-JNJFOC-20111207052

PATIENT
  Sex: Female

DRUGS (3)
  1. SYNTHROID [Concomitant]
  2. RITALIN [Concomitant]
  3. REMICADE [Suspect]
     Indication: COLITIS ULCERATIVE
     Dosage: WEE 0, 2, 6 AND THEN ONCE IN 8 WEEKS
     Route: 042
     Dates: start: 20111020

REACTIONS (2)
  - URINARY INCONTINENCE [None]
  - INFECTION [None]
